FAERS Safety Report 6172697-X (Version None)
Quarter: 2009Q2

REPORT INFORMATION
  Report Type: 
  Country: None (occurrence: None)
  Receive Date: 20090430
  Receipt Date: 20090427
  Transmission Date: 20091009
  Serious: Yes (Other)
  Sender: FDA-Public Use
  Company Number: US-ASTRAZENECA-2008UW27262

PATIENT
  Sex: Male

DRUGS (8)
  1. CRESTOR [Suspect]
     Indication: HYPERCHOLESTEROLAEMIA
     Route: 048
     Dates: start: 20090201
  2. CRESTOR [Suspect]
     Route: 048
     Dates: start: 20090301
  3. NEXIUM [Concomitant]
  4. GLEMIPIRIDE [Concomitant]
     Indication: BLOOD GLUCOSE ABNORMAL
     Dates: start: 20090301
  5. HYZAAR [Concomitant]
     Dates: start: 19980101
  6. ATENOLOL [Concomitant]
     Dates: start: 19850101
  7. PLAVIX [Concomitant]
     Dates: start: 20040101
  8. AMLODIPINE/BENAZAPRIL [Concomitant]
     Indication: BLOOD PRESSURE

REACTIONS (3)
  - CEREBROVASCULAR ACCIDENT [None]
  - DRUG INEFFECTIVE [None]
  - MUSCLE SPASMS [None]
